FAERS Safety Report 20003122 (Version 1)
Quarter: 2021Q4

REPORT INFORMATION
  Report Type: Spontaneous
  Country: CA (occurrence: CA)
  Receive Date: 20211027
  Receipt Date: 20211027
  Transmission Date: 20220304
  Serious: Yes (Hospitalization)
  Sender: FDA-Public Use
  Company Number: CA-MERCK HEALTHCARE KGAA-9272536

PATIENT
  Age: 54 Year
  Sex: Male

DRUGS (1)
  1. BAVENCIO [Suspect]
     Active Substance: AVELUMAB
     Indication: Carcinoma in situ of skin
     Route: 042

REACTIONS (3)
  - Immune-mediated hepatitis [Unknown]
  - Immune-mediated myositis [Unknown]
  - Immune-mediated thyroiditis [Unknown]
